FAERS Safety Report 23814584 (Version 2)
Quarter: 2024Q3

REPORT INFORMATION
  Report Type: Spontaneous
  Country: US (occurrence: US)
  Receive Date: 20240503
  Receipt Date: 20240729
  Transmission Date: 20241017
  Serious: No
  Sender: BAYER
  Company Number: US-BAYER-2024A064168

PATIENT
  Sex: Female

DRUGS (1)
  1. MIRALAX [Suspect]
     Active Substance: POLYETHYLENE GLYCOL 3350
     Dosage: NOT AVAILABLE
     Route: 065

REACTIONS (2)
  - Product package associated injury [Recovering/Resolving]
  - Physical product label issue [None]

NARRATIVE: CASE EVENT DATE: 20240429
